FAERS Safety Report 7880574-9 (Version None)
Quarter: 2011Q4

REPORT INFORMATION
  Report Type: 
  Country: None (occurrence: None)
  Receive Date: 20111101
  Receipt Date: 20100823
  Transmission Date: 20120403
  Serious: No
  Sender: FDA-Public Use
  Company Number: US-BAYER-201031954NA

PATIENT
  Sex: Female
  Weight: 78.005 kg

DRUGS (1)
  1. ULTRAVIST 300 [Suspect]
     Indication: COMPUTERISED TOMOGRAM
     Dosage: 125 ML, UNK
     Route: 042
     Dates: start: 20100823

REACTIONS (1)
  - URTICARIA [None]
